FAERS Safety Report 18603656 (Version 1)
Quarter: 2020Q4

REPORT INFORMATION
  Report Type: Spontaneous
  Country: US (occurrence: US)
  Receive Date: 20201210
  Receipt Date: 20201210
  Transmission Date: 20210114
  Serious: Yes (Hospitalization)
  Sender: FDA-Public Use
  Company Number: None

PATIENT
  Age: 67 Year
  Sex: Female

DRUGS (1)
  1. HUMIRA [Suspect]
     Active Substance: ADALIMUMAB
     Indication: ESSENTIAL HYPERTENSION
     Dosage: ?          OTHER FREQUENCY:EVERY 2 WEEKS;?
     Route: 058
     Dates: start: 20201119

REACTIONS (7)
  - Quality of life decreased [None]
  - Flatulence [None]
  - Colitis [None]
  - Sepsis [None]
  - Condition aggravated [None]
  - Weight fluctuation [None]
  - Infection [None]

NARRATIVE: CASE EVENT DATE: 20201209
